FAERS Safety Report 5907714-2 (Version None)
Quarter: 2008Q4

REPORT INFORMATION
  Report Type: 
  Country: None (occurrence: None)
  Receive Date: 20081003
  Receipt Date: 19870623
  Transmission Date: 20090506
  Serious: Yes (Death)
  Sender: FDA-Public Use
  Company Number: US-ROCHE-870200790001

PATIENT
  Age: 39 Year
  Sex: Male

DRUGS (1)
  1. ROFERON-A [Suspect]
     Indication: KAPOSI'S SARCOMA
     Route: 058
     Dates: start: 19870516

REACTIONS (1)
  - DEATH [None]
